FAERS Safety Report 15719766 (Version 6)
Quarter: 2020Q1

REPORT INFORMATION
  Report Type: Report from Study
  Country: US (occurrence: US)
  Receive Date: 20181213
  Receipt Date: 20200221
  Transmission Date: 20200409
  Serious: Yes (Hospitalization)
  Sender: FDA-Public Use
  Company Number: US-ACTELION-A-US2018-183158

PATIENT
  Age: 69 Year
  Sex: Male

DRUGS (6)
  1. UPTRAVI [Suspect]
     Active Substance: SELEXIPAG
     Dosage: 200 MCG, BID
     Route: 048
     Dates: start: 20181121
  2. UPTRAVI [Suspect]
     Active Substance: SELEXIPAG
     Indication: PULMONARY ARTERIAL HYPERTENSION
     Dosage: 200MCG/1400 MCG BID
     Route: 048
     Dates: start: 20181121
  3. UPTRAVI [Suspect]
     Active Substance: SELEXIPAG
     Dosage: 1400 MG, BID
     Route: 048
  4. UPTRAVI [Suspect]
     Active Substance: SELEXIPAG
     Dosage: 1600 MCG, BID
     Route: 048
  5. UPTRAVI [Suspect]
     Active Substance: SELEXIPAG
     Dosage: 400 MCG, BID
     Route: 048
     Dates: start: 20181121
  6. OXYGEN. [Concomitant]
     Active Substance: OXYGEN

REACTIONS (12)
  - Hyperglycaemia [Unknown]
  - Treatment noncompliance [Unknown]
  - Laziness [Unknown]
  - Pain in extremity [Unknown]
  - Dyspnoea [Unknown]
  - Chest pain [Unknown]
  - Hypoglycaemia [Unknown]
  - Product dose omission [Unknown]
  - Pain [Unknown]
  - Headache [Unknown]
  - Diarrhoea [Unknown]
  - Nausea [Unknown]

NARRATIVE: CASE EVENT DATE: 20181129
